FAERS Safety Report 4827283-8 (Version None)
Quarter: 2005Q4

REPORT INFORMATION
  Report Type: 
  Country: None (occurrence: None)
  Receive Date: 20051014
  Receipt Date: 20050802
  Transmission Date: 20060501
  Serious: No
  Sender: FDA-Public Use
  Company Number: 2005SP002203

PATIENT
  Age: 64 Year
  Sex: Male
  Weight: 108.8633 kg

DRUGS (5)
  1. LUNESTA [Suspect]
     Indication: INSOMNIA
     Dosage: 2 MG; HS; ORAL
     Route: 048
     Dates: start: 20050701
  2. CELEBREX [Concomitant]
  3. THYROXIN [Concomitant]
  4. AMLODIPINE BESYLATE [Concomitant]
  5. STATIN DRUG [Concomitant]

REACTIONS (2)
  - DYSGEUSIA [None]
  - HEADACHE [None]
